FAERS Safety Report 14102991 (Version 1)
Quarter: 2017Q4

REPORT INFORMATION
  Report Type: Spontaneous
  Country: US (occurrence: US)
  Receive Date: 20171018
  Receipt Date: 20171018
  Transmission Date: 20180321
  Serious: No
  Sender: FDA-Public Use
  Company Number: PHEH2017US022344

PATIENT
  Age: 91 Year
  Sex: Female
  Weight: 45.35 kg

DRUGS (1)
  1. CIPROFLOXACIN. [Suspect]
     Active Substance: CIPROFLOXACIN
     Dosage: 2 DRP, Q4H
     Route: 047

REACTIONS (1)
  - Eye irritation [Not Recovered/Not Resolved]
